FAERS Safety Report 4895524-7 (Version None)
Quarter: 2006Q1

REPORT INFORMATION
  Report Type: 
  Country: None (occurrence: None)
  Receive Date: 20060130
  Receipt Date: 20060120
  Transmission Date: 20060701
  Serious: Yes (Death)
  Sender: FDA-Public Use
  Company Number: US-SANOFI-SYNTHELABO-A03200600401

PATIENT
  Sex: Male

DRUGS (2)
  1. PLAVIX [Suspect]
     Indication: DRUG USE FOR UNKNOWN INDICATION
     Dosage: UNK
     Route: 048
  2. PRAVACHOL [Suspect]
     Indication: DRUG USE FOR UNKNOWN INDICATION
     Dosage: UNK
     Route: 048

REACTIONS (1)
  - PNEUMONIA [None]
